FAERS Safety Report 9905908 (Version 2)
Quarter: 2014Q1

REPORT INFORMATION
  Report Type: Spontaneous
  Country: US (occurrence: US)
  Receive Date: 20140218
  Receipt Date: 20140218
  Transmission Date: 20141002
  Serious: No
  Sender: FDA-Public Use
  Company Number: US-GILEAD-2012-0048979

PATIENT
  Age: 47 Year
  Sex: Male

DRUGS (4)
  1. LETAIRIS [Suspect]
     Indication: PULMONARY HYPERTENSION
     Dosage: 10 MG, UNK
     Route: 048
     Dates: start: 201112
  2. REMODULIN [Suspect]
  3. REVATIO [Concomitant]
  4. GABAPENTIN [Concomitant]
     Dosage: UNK
     Dates: start: 201003

REACTIONS (3)
  - Epistaxis [Unknown]
  - Pain in extremity [Unknown]
  - Headache [Not Recovered/Not Resolved]
